FAERS Safety Report 8381988 (Version 3)
Quarter: 2012Q4

REPORT INFORMATION
  Report Type: Report from Study
  Country: JP (occurrence: JP)
  Receive Date: 20120201
  Receipt Date: 20120830
  Transmission Date: 20130627
  Serious: Yes (Death)
  Sender: FDA-Public Use
  Company Number: JP-ABBOTT-11P-087-0869291-00

PATIENT
  Age: 55 Year
  Sex: Male
  Weight: 49.5 kg

DRUGS (7)
  1. HUMIRA 40 MG/ 0.8 ML PRE-FILLED SYRINGE [Suspect]
     Indication: CROHN^S DISEASE
     Route: 058
     Dates: start: 20110427, end: 20110427
  2. HUMIRA 40 MG/ 0.8 ML PRE-FILLED SYRINGE [Suspect]
     Dates: start: 20110512, end: 20110512
  3. HUMIRA 40 MG/ 0.8 ML PRE-FILLED SYRINGE [Suspect]
     Dates: start: 20110525, end: 20120104
  4. MESALAZINE [Concomitant]
     Indication: CROHN^S DISEASE
     Route: 048
     Dates: end: 20120112
  5. SODIUM FERROUS CITRATE [Concomitant]
     Indication: ANAEMIA
     Route: 048
     Dates: end: 20120112
  6. LOXOPROFEN SODIUM HYDRATE [Concomitant]
     Indication: PAIN
     Dosage: 60-180 mg, As required
     Route: 048
     Dates: end: 20120112
  7. REBAMIPIDE [Concomitant]
     Indication: PROPHYLAXIS
     Route: 048
     Dates: end: 20120112

REACTIONS (2)
  - Myocardial infarction [Fatal]
  - Abdominal discomfort [Recovering/Resolving]
